FAERS Safety Report 20056660 (Version 1)
Quarter: 2021Q4

REPORT INFORMATION
  Report Type: Spontaneous
  Country: GB (occurrence: None)
  Receive Date: 20211111
  Receipt Date: 20211111
  Transmission Date: 20220303
  Serious: Yes (Other)
  Sender: FDA-Public Use
  Company Number: 2021A267841

PATIENT
  Age: 48 Year
  Sex: Female
  Weight: 90 kg

DRUGS (6)
  1. OMEPRAZOLE [Suspect]
     Active Substance: OMEPRAZOLE
     Indication: Ill-defined disorder
     Dosage: 40MG UNTIL SEP 2020 THEN REDUCED DUE TO SIDE EFFECTS WHICH THEN SUBSIDED NOW 20MG
     Route: 048
     Dates: start: 20191201, end: 202009
  2. OMEPRAZOLE [Suspect]
     Active Substance: OMEPRAZOLE
     Indication: Gastrooesophageal reflux disease
     Dosage: 40MG UNTIL SEP 2020 THEN REDUCED DUE TO SIDE EFFECTS WHICH THEN SUBSIDED NOW 20MG
     Route: 048
     Dates: start: 20191201, end: 202009
  3. OMEPRAZOLE [Suspect]
     Active Substance: OMEPRAZOLE
     Indication: Ill-defined disorder
     Dosage: FIRST REDUCED DOSE TO 30MG
     Route: 048
  4. OMEPRAZOLE [Suspect]
     Active Substance: OMEPRAZOLE
     Indication: Gastrooesophageal reflux disease
     Dosage: FIRST REDUCED DOSE TO 30MG
     Route: 048
  5. OMEPRAZOLE [Suspect]
     Active Substance: OMEPRAZOLE
     Indication: Ill-defined disorder
     Dosage: 20MG
     Route: 048
  6. OMEPRAZOLE [Suspect]
     Active Substance: OMEPRAZOLE
     Indication: Gastrooesophageal reflux disease
     Dosage: 20MG
     Route: 048

REACTIONS (2)
  - Muscle spasms [Recovered/Resolved]
  - Cardiac flutter [Recovered/Resolved]

NARRATIVE: CASE EVENT DATE: 20200301
